FAERS Safety Report 9981212 (Version 1)
Quarter: 2014Q1

REPORT INFORMATION
  Report Type: Report from Study
  Country: US (occurrence: US)
  Receive Date: 20140307
  Receipt Date: 20140307
  Transmission Date: 20141002
  Serious: Yes (Hospitalization)
  Sender: FDA-Public Use
  Company Number: US-ROCHE-1361585

PATIENT
  Age: 51 Year
  Sex: Female
  Weight: 110 kg

DRUGS (36)
  1. CELLCEPT [Suspect]
     Indication: PROPHYLAXIS AGAINST TRANSPLANT REJECTION
     Route: 048
     Dates: start: 20020131, end: 20100702
  2. TYLENOL [Concomitant]
     Indication: PAIN
     Dosage: 2500 MG AS NEEDED
     Route: 065
     Dates: start: 19930305
  3. METOPROLOL SUCCINATE [Concomitant]
     Indication: CARDIOVASCULAR EVENT PROPHYLAXIS
     Route: 048
     Dates: start: 19980917
  4. ASPIRIN [Concomitant]
     Indication: CARDIOVASCULAR EVENT PROPHYLAXIS
     Route: 048
     Dates: start: 19980917
  5. ASPIRIN [Concomitant]
     Indication: CORONARY ARTERY DISEASE
  6. FUROSEMIDE [Concomitant]
     Indication: OEDEMA
     Route: 048
     Dates: start: 20000112
  7. TACROLIMUS [Concomitant]
     Indication: PROPHYLAXIS AGAINST TRANSPLANT REJECTION
     Route: 048
     Dates: start: 20020201
  8. PREDNISONE [Concomitant]
     Indication: PROPHYLAXIS AGAINST TRANSPLANT REJECTION
     Route: 048
     Dates: start: 20020325
  9. ISOSORBIDE MONONITRATE [Concomitant]
     Indication: CARDIOVASCULAR EVENT PROPHYLAXIS
     Route: 048
     Dates: start: 20071210
  10. SIMVASTATIN [Concomitant]
     Indication: BLOOD CHOLESTEROL INCREASED
     Route: 048
     Dates: start: 20081229
  11. PROAIR (UNITED STATES) [Concomitant]
     Indication: ASTHMA
     Route: 065
     Dates: start: 20091229
  12. NOVOLOG [Concomitant]
     Indication: TYPE 1 DIABETES MELLITUS
     Dosage: 2 IU AS NEEDED
     Route: 065
     Dates: start: 20091229
  13. NOVOLOG [Concomitant]
     Indication: BLOOD GLUCOSE INCREASED
  14. GABAPENTIN [Concomitant]
     Indication: PAIN
     Route: 048
     Dates: start: 20101227
  15. GABAPENTIN [Concomitant]
     Indication: DIABETIC NEUROPATHY
  16. GABAPENTIN [Concomitant]
     Indication: NEUROPATHY PERIPHERAL
  17. OMEPRAZOLE [Concomitant]
     Indication: GASTROOESOPHAGEAL REFLUX DISEASE
     Route: 048
     Dates: start: 20110101
  18. OXYCODONE [Concomitant]
     Indication: PAIN
     Route: 065
     Dates: start: 20110601
  19. OXYCODONE [Concomitant]
     Indication: FIBROMYALGIA
  20. VENLAFAXINE [Concomitant]
     Indication: DEPRESSION
     Route: 048
     Dates: start: 20121207
  21. VENLAFAXINE [Concomitant]
     Indication: GENERALISED ANXIETY DISORDER
  22. VENLAFAXINE [Concomitant]
     Indication: MAJOR DEPRESSION
  23. DOCUSATE [Concomitant]
     Indication: CONSTIPATION
     Route: 048
     Dates: start: 20130102
  24. LANTUS [Concomitant]
     Indication: BLOOD GLUCOSE INCREASED
     Route: 058
     Dates: start: 20130105
  25. LANTUS [Concomitant]
     Indication: TYPE 1 DIABETES MELLITUS
  26. FENTANYL TRANSDERMAL [Concomitant]
     Indication: PAIN
     Route: 065
     Dates: start: 20130226
  27. FENTANYL TRANSDERMAL [Concomitant]
     Indication: FIBROMYALGIA
  28. DIOVAN [Concomitant]
     Indication: HYPERTENSION
     Route: 048
     Dates: start: 20130701
  29. BUSPIRONE [Concomitant]
     Indication: DEPRESSION
     Route: 048
     Dates: start: 20130701
  30. BUSPIRONE [Concomitant]
     Indication: GENERALISED ANXIETY DISORDER
  31. INSULIN NPH [Concomitant]
     Indication: TYPE 1 DIABETES MELLITUS
  32. ROCEPHIN [Concomitant]
     Indication: CELLULITIS
     Route: 065
     Dates: end: 20140116
  33. RANITIDINE [Concomitant]
     Indication: GASTROOESOPHAGEAL REFLUX DISEASE
     Route: 065
     Dates: start: 20110701
  34. INSULIN REGULAR [Concomitant]
     Indication: TYPE 1 DIABETES MELLITUS
  35. SIROLIMUS [Concomitant]
     Indication: PROPHYLAXIS AGAINST TRANSPLANT REJECTION
     Route: 065
     Dates: end: 20100701
  36. MENTHOL [Concomitant]
     Indication: PAIN
     Route: 065
     Dates: start: 20070613

REACTIONS (5)
  - Cellulitis [Recovered/Resolved]
  - Vomiting [Recovered/Resolved]
  - Pyrexia [Recovered/Resolved]
  - Condition aggravated [Recovered/Resolved]
  - Infection [Recovered/Resolved]
